FAERS Safety Report 9034051 (Version 1)
Quarter: 2013Q1

REPORT INFORMATION
  Report Type: Spontaneous
  Country: US (occurrence: None)
  Receive Date: 20130116
  Receipt Date: 20130116
  Transmission Date: 20140127
  Serious: Yes (Other)
  Sender: FDA-Public Use
  Company Number: None

PATIENT
  Sex: Female

DRUGS (1)
  1. FORTEO [Suspect]
     Dosage: 20MCG QD SQ
     Route: 058
     Dates: start: 20130111, end: 20130113

REACTIONS (3)
  - Nausea [None]
  - Vomiting projectile [None]
  - Slow speech [None]
